FAERS Safety Report 4281854-9 (Version None)
Quarter: 2004Q1

REPORT INFORMATION
  Report Type: 
  Country: None (occurrence: None)
  Receive Date: 20040129
  Receipt Date: 20031219
  Transmission Date: 20041129
  Serious: Yes (Life-Threatening, Disabling)
  Sender: FDA-Public Use
  Company Number: WAES 0312AUS00068

PATIENT
  Age: 62 Year
  Sex: Male
  Weight: 75 kg

DRUGS (1)
  1. TIMOPTIC [Suspect]
     Indication: GLAUCOMA
     Route: 047
     Dates: start: 20000926, end: 20031127

REACTIONS (7)
  - ABNORMAL SENSATION IN EYE [None]
  - AMNESIA [None]
  - DRY MOUTH [None]
  - EYE IRRITATION [None]
  - KERATOCONJUNCTIVITIS SICCA [None]
  - OROPHARYNGEAL SWELLING [None]
  - SOMNOLENCE [None]
